FAERS Safety Report 4818665-9 (Version None)
Quarter: 2005Q4

REPORT INFORMATION
  Report Type: 
  Country: None (occurrence: None)
  Receive Date: 20051102
  Receipt Date: 20050708
  Transmission Date: 20060501
  Serious: Yes (Hospitalization, Other)
  Sender: FDA-Public Use
  Company Number: US-MERCK-0507USA01276

PATIENT
  Age: 71 Year
  Sex: Male
  Weight: 89 kg

DRUGS (14)
  1. VIOXX [Suspect]
     Indication: ARTHRITIS
     Route: 048
     Dates: start: 20020101, end: 20040930
  2. PRAVACHOL [Concomitant]
     Indication: BLOOD CHOLESTEROL INCREASED
     Route: 065
     Dates: start: 20001201
  3. COUMADIN [Concomitant]
     Indication: ANTICOAGULANT THERAPY
     Route: 065
     Dates: start: 20030801
  4. PREVACID [Concomitant]
     Indication: GASTROOESOPHAGEAL REFLUX DISEASE
     Route: 065
  5. VASOTEC [Concomitant]
     Indication: HYPERTENSION
     Route: 065
  6. METOPROLOL [Concomitant]
     Indication: HYPERTENSION
     Route: 065
  7. FELODIPINE [Concomitant]
     Indication: HYPERTENSION
     Route: 065
     Dates: start: 20010501
  8. FLOMAX (MORNIFLUMATE) [Concomitant]
     Indication: BENIGN PROSTATIC HYPERPLASIA
     Route: 065
  9. PLAVIX [Concomitant]
     Route: 065
  10. ASPIRIN [Concomitant]
     Indication: ANTICOAGULANT THERAPY
     Route: 065
  11. ASPIRIN [Concomitant]
     Indication: PROPHYLAXIS
     Route: 065
  12. ZEBETA [Concomitant]
     Indication: HYPERTENSION
     Route: 065
     Dates: start: 20010101
  13. NITRO-SPRAY [Concomitant]
     Route: 065
     Dates: start: 19940101
  14. FOLIC ACID [Concomitant]
     Route: 065
     Dates: start: 19940101

REACTIONS (10)
  - ACUTE PRERENAL FAILURE [None]
  - BENIGN NEOPLASM OF THYROID GLAND [None]
  - BLINDNESS UNILATERAL [None]
  - CAROTID ARTERY STENOSIS [None]
  - CHEST PAIN [None]
  - EOSINOPHILIA [None]
  - ERECTILE DYSFUNCTION [None]
  - PSORIASIS [None]
  - RETINAL ARTERY OCCLUSION [None]
  - VENTRICULAR EXTRASYSTOLES [None]
